FAERS Safety Report 5501505-2 (Version None)
Quarter: 2007Q4

REPORT INFORMATION
  Report Type: 
  Country: None (occurrence: None)
  Receive Date: 20071026
  Receipt Date: 20071011
  Transmission Date: 20080405
  Serious: Yes (Other)
  Sender: FDA-Public Use
  Company Number: 100#08#2007-04069

PATIENT
  Age: 45 Year
  Sex: Male

DRUGS (10)
  1. AMIODARONE HCL [Suspect]
     Indication: CARDIOVERSION
     Dosage: 400 MG TWICE DAILY ORAL; 1500 MG INTRAVENOUS; 400 MG (DAILY) ORAL; 200 MG (DAILY) ORAL
     Route: 048
  2. AMIODARONE HCL [Suspect]
     Indication: VENTRICULAR TACHYCARDIA
     Dosage: 400 MG TWICE DAILY ORAL; 1500 MG INTRAVENOUS; 400 MG (DAILY) ORAL; 200 MG (DAILY) ORAL
     Route: 048
  3. AMIODARONE HCL [Suspect]
     Indication: CARDIOVERSION
     Dosage: 400 MG TWICE DAILY ORAL; 1500 MG INTRAVENOUS; 400 MG (DAILY) ORAL; 200 MG (DAILY) ORAL
     Route: 048
  4. AMIODARONE HCL [Suspect]
     Indication: VENTRICULAR TACHYCARDIA
     Dosage: 400 MG TWICE DAILY ORAL; 1500 MG INTRAVENOUS; 400 MG (DAILY) ORAL; 200 MG (DAILY) ORAL
     Route: 048
  5. CARVEDILOL (CARVEDILOL) (CARVEDILOL) [Concomitant]
  6. SPIRONOLACTONE [Concomitant]
  7. FUROSEMIDE + AMILORIDE (FUROSEMIDE, AMILORIDE) [Concomitant]
  8. DIGOXIN [Concomitant]
  9. LEVOTHYROXIN (LEVOTHYROXINE) (LEVOTHYROXIN) [Concomitant]
  10. ACETOCOUMAROL (ACETOCOUMAROL) [Concomitant]

REACTIONS (2)
  - EPIDIDYMITIS [None]
  - THYROID DISORDER [None]
